FAERS Safety Report 4550015-8 (Version None)
Quarter: 2005Q1

REPORT INFORMATION
  Report Type: 
  Country: None (occurrence: None)
  Receive Date: 20050111
  Receipt Date: 20050111
  Transmission Date: 20050727
  Serious: No
  Sender: FDA-Public Use
  Company Number: None

PATIENT
  Age: 78 Year
  Sex: Male

DRUGS (1)
  1. SALSALATE 750 MG [Suspect]
     Indication: PAIN
     Dosage: 750 MG PO BID
     Route: 048

REACTIONS (2)
  - HAEMATOCRIT DECREASED [None]
  - LOWER GASTROINTESTINAL HAEMORRHAGE [None]
